FAERS Safety Report 4950067-7 (Version None)
Quarter: 2006Q1

REPORT INFORMATION
  Report Type: 
  Country: None (occurrence: None)
  Receive Date: 20060320
  Receipt Date: 20060320
  Transmission Date: 20060701
  Serious: No
  Sender: FDA-Public Use
  Company Number: None

PATIENT
  Age: 56 Year
  Sex: Male
  Weight: 66.6788 kg

DRUGS (1)
  1. IBUPROFEN [Suspect]
     Dosage: 600 MG TAB

REACTIONS (3)
  - ABDOMINAL PAIN UPPER [None]
  - DRUG TOLERANCE DECREASED [None]
  - PHARMACEUTICAL PRODUCT COMPLAINT [None]
